FAERS Safety Report 11098955 (Version 2)
Quarter: 2015Q2

REPORT INFORMATION
  Report Type: Spontaneous
  Country: IT (occurrence: IT)
  Receive Date: 20150508
  Receipt Date: 20150602
  Transmission Date: 20150821
  Serious: Yes (Other)
  Sender: FDA-Public Use
  Company Number: IT-ROCHE-1574902

PATIENT
  Age: 66 Year
  Sex: Female

DRUGS (5)
  1. 5-FLUOROURACIL [Concomitant]
     Active Substance: FLUOROURACIL
     Route: 065
     Dates: start: 20140702, end: 20141203
  2. AVASTIN [Suspect]
     Active Substance: BEVACIZUMAB
     Indication: ADENOCARCINOMA OF COLON
     Dosage: 1 X 400 MG VIAL , CONCENTRATE FOR SOLUTION FOR INFUSION
     Route: 042
     Dates: start: 20140702, end: 20150402
  3. CALCIUM LEVOFOLINATE [Concomitant]
     Active Substance: LEVOLEUCOVORIN CALCIUM
     Dosage: SOLUTION FOR INJECTION
     Route: 042
     Dates: start: 20140702, end: 20141203
  4. PLASIL [Concomitant]
     Active Substance: METOCLOPRAMIDE HYDROCHLORIDE
     Indication: ANTIEMETIC SUPPORTIVE CARE
     Dosage: 10 MG/2 ML 5 X 2 ML AMPOULES?SOLUTION FOR INJECTION
     Route: 042
  5. OXALIPLATIN. [Concomitant]
     Active Substance: OXALIPLATIN
     Route: 065
     Dates: start: 20140702, end: 20141203

REACTIONS (2)
  - Ischaemic cerebral infarction [Recovering/Resolving]
  - Basal ganglia infarction [Recovering/Resolving]

NARRATIVE: CASE EVENT DATE: 20150402
